FAERS Safety Report 15131806 (Version 2)
Quarter: 2018Q3

REPORT INFORMATION
  Report Type: Spontaneous
  Country: GB (occurrence: GB)
  Receive Date: 20180711
  Receipt Date: 20180904
  Transmission Date: 20181010
  Serious: Yes (Life-Threatening)
  Sender: FDA-Public Use
  Company Number: GB-PFIZER INC-2018277316

PATIENT
  Age: 47 Year
  Sex: Male
  Weight: 94 kg

DRUGS (8)
  1. VARENICLINE TARTRATE [Suspect]
     Active Substance: VARENICLINE TARTRATE
     Dosage: UNK
     Dates: start: 20171124
  2. SALBUTAMOL [Concomitant]
     Active Substance: ALBUTEROL
     Indication: DYSPNOEA
     Dosage: 2 DF, AS NEEDED
     Route: 055
     Dates: start: 20180411
  3. PARACETAMOL [Concomitant]
     Active Substance: ACETAMINOPHEN
     Dosage: DOSE 1?2 TO BE TAKEN FOUR TIMES DAILY (AS NECESSARY)
     Dates: start: 20180323, end: 20180402
  4. GABAPENTIN. [Concomitant]
     Active Substance: GABAPENTIN
     Dosage: 6 DF, DAILY
     Dates: start: 20171129
  5. BISOPROLOL [Concomitant]
     Active Substance: BISOPROLOL
     Dosage: 1 DF, DAILY
     Dates: start: 20180106
  6. SERTRALINE [Concomitant]
     Active Substance: SERTRALINE HYDROCHLORIDE
     Dosage: 1 DF, DAILY
     Dates: start: 20180430, end: 20180528
  7. CODEINE PHOSPHATE [Concomitant]
     Active Substance: CODEINE PHOSPHATE
     Indication: PAIN
     Dosage: TAKE ONE TO TWO UP TO  4 TIMES/DAY, MAX 8 DAILY
     Dates: start: 20180529, end: 20180605
  8. ATORVASTATIN [Concomitant]
     Active Substance: ATORVASTATIN
     Dosage: 1 DF, DAILY
     Dates: start: 20180106

REACTIONS (3)
  - Generalised tonic-clonic seizure [Not Recovered/Not Resolved]
  - Cardiac arrest [Unknown]
  - Ventricular fibrillation [Unknown]

NARRATIVE: CASE EVENT DATE: 20171221
